FAERS Safety Report 23520142 (Version 2)
Quarter: 2024Q1

REPORT INFORMATION
  Report Type: Report from Study
  Country: US (occurrence: US)
  Receive Date: 20240214
  Receipt Date: 20240320
  Transmission Date: 20240410
  Serious: Yes (Hospitalization, Other)
  Sender: FDA-Public Use
  Company Number: US-ABBVIE-5546890

PATIENT
  Sex: Female

DRUGS (3)
  1. RINVOQ [Suspect]
     Active Substance: UPADACITINIB
     Indication: Dermatitis atopic
     Dosage: FORM STRENGTH: 15 MILLIGRAM?THE FIRST ADMIN DATE WAS NOV 2023
     Route: 048
  2. RINVOQ [Suspect]
     Active Substance: UPADACITINIB
     Indication: Dermatitis atopic
     Dosage: LAST ADMIN DATE 2023?FORM STRENGTH: 15 MILLIGRAM
     Route: 048
     Dates: start: 202309
  3. RINVOQ [Suspect]
     Active Substance: UPADACITINIB
     Indication: Dermatitis atopic
     Dosage: FORM STRENGTH: 15 MILLIGRAM?THE LAST ADMIN DATE WAS NOV 2023
     Route: 048
     Dates: start: 20231120

REACTIONS (14)
  - Cholecystectomy [Unknown]
  - Gastrointestinal disorder [Unknown]
  - Headache [Unknown]
  - Gastrointestinal sounds abnormal [Not Recovered/Not Resolved]
  - Abdominal discomfort [Unknown]
  - Dyspepsia [Unknown]
  - Constipation [Unknown]
  - Abdominal pain upper [Unknown]
  - Hospitalisation [Unknown]
  - Respiratory syncytial virus infection [Unknown]
  - Fatigue [Unknown]
  - COVID-19 [Unknown]
  - Pneumonia [Unknown]
  - Conjunctivitis [Unknown]

NARRATIVE: CASE EVENT DATE: 20230101
